FAERS Safety Report 21521024 (Version 2)
Quarter: 2023Q1

REPORT INFORMATION
  Report Type: Report from Study
  Country: FR (occurrence: None)
  Receive Date: 20221028
  Receipt Date: 20230105
  Transmission Date: 20230418
  Serious: Yes (Hospitalization)
  Sender: FDA-Public Use
  Company Number: FR-ROCHE-3205616

PATIENT
  Age: 64 Year
  Sex: Female
  Weight: 75 kg

DRUGS (2)
  1. ATEZOLIZUMAB [Suspect]
     Active Substance: ATEZOLIZUMAB
     Indication: Bladder transitional cell carcinoma
     Dosage: C9, ON 18/OCT/2022, LAST DOSE OF ATEZOLIZUMAB WAS ADMINISTERED PRIOR TO EVENT ONSET.
     Route: 041
     Dates: start: 20220502
  2. BCG VACCINE [Suspect]
     Active Substance: BCG VACCINE
     Indication: Bladder transitional cell carcinoma
     Dosage: WEEK 15. ON 22/AUG/2022, LAST DOSE OF BCG WAS ADMINISTERED PRIOR TO EVENT ONSET.
     Route: 043
     Dates: start: 20220502

REACTIONS (1)
  - COVID-19 pneumonia [Recovering/Resolving]

NARRATIVE: CASE EVENT DATE: 20221020
